FAERS Safety Report 21394048 (Version 2)
Quarter: 2022Q4

REPORT INFORMATION
  Report Type: Report from Study
  Country: US (occurrence: US)
  Receive Date: 20220930
  Receipt Date: 20221018
  Transmission Date: 20230113
  Serious: Yes (Hospitalization)
  Sender: FDA-Public Use
  Company Number: US-009507513-2209USA010568

PATIENT
  Age: 60 Year
  Sex: Male

DRUGS (2)
  1. KEYTRUDA [Suspect]
     Active Substance: PEMBROLIZUMAB
     Indication: Colorectal cancer
     Dosage: 200 MG IV EVERY 21 DAYS (Q3W)
     Route: 042
     Dates: start: 20211208
  2. TPST-1495 [Suspect]
     Active Substance: TPST-1495
     Indication: Colorectal cancer
     Dosage: UNK
     Dates: start: 20211208, end: 20220601

REACTIONS (2)
  - Adrenal insufficiency [Recovered/Resolved]
  - Adrenal insufficiency [Recovered/Resolved]

NARRATIVE: CASE EVENT DATE: 20220601
